FAERS Safety Report 22136041 (Version 2)
Quarter: 2023Q2

REPORT INFORMATION
  Report Type: Report from Study
  Country: CA (occurrence: CA)
  Receive Date: 20230324
  Receipt Date: 20230415
  Transmission Date: 20230721
  Serious: Yes (Other)
  Sender: FDA-Public Use
  Company Number: CA-JNJFOC-20230355078

PATIENT
  Age: 12 Year
  Sex: Male
  Weight: 49 kg

DRUGS (2)
  1. REMICADE [Suspect]
     Active Substance: INFLIXIMAB
     Indication: Crohn^s disease
     Route: 041
     Dates: start: 20211021
  2. REMICADE [Suspect]
     Active Substance: INFLIXIMAB
     Dosage: RE-INDUCTION
     Route: 041
     Dates: start: 20230328

REACTIONS (3)
  - Crohn^s disease [Not Recovered/Not Resolved]
  - Anaemia [Not Recovered/Not Resolved]
  - Drug level decreased [Unknown]

NARRATIVE: CASE EVENT DATE: 20230101
